FAERS Safety Report 5856026-4 (Version None)
Quarter: 2008Q3

REPORT INFORMATION
  Report Type: 
  Country: None (occurrence: None)
  Receive Date: 20080825
  Receipt Date: 20080609
  Transmission Date: 20090109
  Serious: No
  Sender: FDA-Public Use
  Company Number: US-BAYER-200825972NA

PATIENT
  Age: 23 Year
  Sex: Female
  Weight: 67 kg

DRUGS (1)
  1. MIRENA [Suspect]
     Indication: CONTRACEPTION
     Route: 015
     Dates: end: 20071201

REACTIONS (3)
  - INTRA-UTERINE CONTRACEPTIVE DEVICE EXPELLED [None]
  - POST PROCEDURAL HAEMORRHAGE [None]
  - PROCEDURAL PAIN [None]
